FAERS Safety Report 5924401-5 (Version None)
Quarter: 2008Q4

REPORT INFORMATION
  Report Type: 
  Country: None (occurrence: None)
  Receive Date: 20081020
  Receipt Date: 20081009
  Transmission Date: 20090506
  Serious: No
  Sender: FDA-Public Use
  Company Number: US-B.I. PHARMACEUTICALS,INC./RIDGEFIELD-2008-BP-14208BP

PATIENT
  Sex: Female
  Weight: 49 kg

DRUGS (7)
  1. SPIRIVA [Suspect]
     Indication: CHRONIC OBSTRUCTIVE PULMONARY DISEASE
     Dosage: 18MCG
     Route: 055
     Dates: start: 20070801
  2. OXYGEN [Concomitant]
     Indication: CHRONIC OBSTRUCTIVE PULMONARY DISEASE
     Dosage: (GAS) 2 L/M, NASALLY
     Route: 045
     Dates: start: 19971101
  3. ALBUTEROL [Concomitant]
     Indication: CHRONIC OBSTRUCTIVE PULMONARY DISEASE
     Route: 055
     Dates: start: 20050101
  4. ASPIRIN [Concomitant]
  5. QVAR 40 [Concomitant]
     Dosage: 4PUF
     Dates: start: 20050101
  6. FUROSEMIDE [Concomitant]
     Dosage: 20MG
     Dates: start: 20070101
  7. ZANTAC [Concomitant]
     Dosage: 300MG
     Dates: start: 20041201

REACTIONS (2)
  - ABDOMINAL DISCOMFORT [None]
  - CONSTIPATION [None]
